FAERS Safety Report 4700972-1 (Version None)
Quarter: 2005Q2

REPORT INFORMATION
  Report Type: 
  Country: None (occurrence: None)
  Receive Date: 20050624
  Receipt Date: 20050610
  Transmission Date: 20051028
  Serious: Yes (Hospitalization)
  Sender: FDA-Public Use
  Company Number: B0384337A

PATIENT
  Age: 38 Year
  Sex: Male

DRUGS (2)
  1. AUGMENTIN '250' [Suspect]
  2. ACYCLOVIR [Concomitant]

REACTIONS (28)
  - ABDOMINAL DISTENSION [None]
  - ABDOMINAL PAIN [None]
  - ABSCESS [None]
  - ANEURYSM [None]
  - BAND NEUTROPHIL PERCENTAGE INCREASED [None]
  - BLINDNESS UNILATERAL [None]
  - BLOOD CREATININE INCREASED [None]
  - BODY TEMPERATURE INCREASED [None]
  - COLITIS ULCERATIVE [None]
  - DIARRHOEA [None]
  - DIFFICULTY IN WALKING [None]
  - DIPLOPIA [None]
  - DYSPNOEA [None]
  - ERYTHEMA [None]
  - HAEMATOCHEZIA [None]
  - HEPATIC ARTERY STENOSIS [None]
  - INFLAMMATION [None]
  - LARGE INTESTINAL ULCER [None]
  - LEUKOCYTOCLASTIC VASCULITIS [None]
  - PAIN IN EXTREMITY [None]
  - RENAL ANEURYSM [None]
  - RETINAL VASCULITIS [None]
  - TENDERNESS [None]
  - TESTICULAR PAIN [None]
  - THROMBOPHLEBITIS SUPERFICIAL [None]
  - VASCULITIS [None]
  - VISUAL ACUITY REDUCED [None]
  - WHITE BLOOD CELL COUNT INCREASED [None]
